FAERS Safety Report 9888586 (Version 6)
Quarter: 2017Q3

REPORT INFORMATION
  Report Type: Report from Study
  Country: US (occurrence: US)
  Receive Date: 20140211
  Receipt Date: 20170816
  Transmission Date: 20171128
  Serious: Yes (Hospitalization)
  Sender: FDA-Public Use
  Company Number: US-SA-2013SA118271

PATIENT
  Age: 65 Year
  Sex: Male

DRUGS (18)
  1. ATORVASTATIN [Concomitant]
     Active Substance: ATORVASTATIN
     Dates: start: 20060717
  2. PREDNISONE. [Concomitant]
     Active Substance: PREDNISONE
     Dates: start: 20000101
  3. DILANTIN [Suspect]
     Active Substance: PHENYTOIN
     Indication: PRODUCT USED FOR UNKNOWN INDICATION
     Dosage: DOWN TITRATION OF DILANTIN DOSE
     Route: 065
  4. ASPIRIN. [Concomitant]
     Active Substance: ASPIRIN
     Dates: start: 20060717
  5. FERROUS SULFATE. [Concomitant]
     Active Substance: FERROUS SULFATE
     Dates: start: 20060717
  6. PHENYTOIN SODIUM. [Concomitant]
     Active Substance: PHENYTOIN SODIUM
     Dosage: 300 MG EVERY OTHER DAY ALTERNATING WITH 400 MG EVERY OTHER DAY
     Dates: start: 20061003
  7. TYLENOL [Concomitant]
     Active Substance: ACETAMINOPHEN
     Indication: PAIN
  8. CARBIDOPA/LEVODOPA [Concomitant]
     Dosage: 25-100 MG
     Dates: start: 20110208
  9. ARICEPT [Concomitant]
     Active Substance: DONEPEZIL HYDROCHLORIDE
     Dates: start: 20110208
  10. PANTHENOL/RETINOL/THIAMINE HYDROCHLORIDE/ASCORBIC ACID/ERGOCALCIFEROL/FOLIC ACID/RIBOFLAVIN/NICOTINA [Concomitant]
     Dates: start: 20090223
  11. WARFARIN SODIUM. [Suspect]
     Active Substance: WARFARIN SODIUM
     Indication: PRODUCT USED FOR UNKNOWN INDICATION
     Route: 065
  12. VITAMIN D [Concomitant]
     Active Substance: CHOLECALCIFEROL
     Dosage: DOSE:1000 UNIT(S)
     Dates: start: 20120718
  13. SULFAMETHOXAZOLE [Concomitant]
     Active Substance: SULFAMETHOXAZOLE
     Dosage: 800-160 MG
     Dates: start: 20060717
  14. OYST-CAL [Concomitant]
     Dates: start: 19850601
  15. FABRAZYME [Suspect]
     Active Substance: AGALSIDASE BETA
     Indication: FABRY^S DISEASE
     Dosage: DOSE: 75
     Route: 041
     Dates: start: 20040513
  16. DIPYRIDAMOLE. [Concomitant]
     Active Substance: DIPYRIDAMOLE
     Dosage: 3 TABLETS ALTERNATING TO 4 TABLETS ON THE NEXT DAY
     Dates: start: 20061030
  17. GENGRAF [Concomitant]
     Active Substance: CYCLOSPORINE
     Dates: start: 20000717
  18. PANTOPRAZOLE SODIUM. [Concomitant]
     Active Substance: PANTOPRAZOLE SODIUM
     Dates: start: 20060717

REACTIONS (7)
  - Fall [Recovered/Resolved]
  - Muscle atrophy [Not Recovered/Not Resolved]
  - Asthenia [Not Recovered/Not Resolved]
  - Overdose [Unknown]
  - Confusional state [Recovered/Resolved]
  - Speech disorder [Recovered/Resolved]
  - International normalised ratio increased [Recovered/Resolved]

NARRATIVE: CASE EVENT DATE: 201308
